FAERS Safety Report 8296320-3 (Version None)
Quarter: 2012Q1

REPORT INFORMATION
  Report Type: 
  Country: None (occurrence: None)
  Receive Date: 20120322
  Receipt Date: 20120112
  Transmission Date: 20120608
  Serious: Yes (Hospitalization)
  Sender: FDA-Public Use
  Company Number: UTC-014578

PATIENT
  Age: 68 Year
  Sex: Male
  Weight: 78.18 kg

DRUGS (3)
  1. REVATIO [Concomitant]
  2. DIURETICS (DIURETICS) [Concomitant]
  3. TYVASO [Suspect]
     Indication: PULMONARY HYPERTENSION
     Dosage: 360 MCG (90 MCG, 4 IN 1 D), INHALATION
     Route: 055
     Dates: start: 20101019

REACTIONS (1)
  - PULMONARY OEDEMA [None]
